FAERS Safety Report 8115205-6 (Version None)
Quarter: 2012Q1

REPORT INFORMATION
  Report Type: 
  Country: None (occurrence: None)
  Receive Date: 20120201
  Receipt Date: 20120123
  Transmission Date: 20120608
  Serious: Yes (Other)
  Sender: FDA-Public Use
  Company Number: 1000027356

PATIENT
  Age: 51 Year
  Sex: Female

DRUGS (6)
  1. SOMA [Concomitant]
  2. NORCO (HYDROCODONE, ACETAMINOPHEN) [Concomitant]
  3. TRAZODONE HCL [Concomitant]
  4. FENTANYL CITRATE [Concomitant]
  5. GABAPENTIN [Concomitant]
  6. LEXAPRO [Suspect]
     Indication: DEPRESSION
     Dosage: 20 MG (20 MG, 1 IN 1 D), ORAL
     Route: 048
     Dates: start: 20100101, end: 20120119

REACTIONS (4)
  - HEART RATE INCREASED [None]
  - DYSPNOEA [None]
  - MIGRAINE [None]
  - PALPITATIONS [None]
